FAERS Safety Report 7253613-6 (Version None)
Quarter: 2011Q1

REPORT INFORMATION
  Report Type: 
  Country: None (occurrence: None)
  Receive Date: 20110129
  Receipt Date: 20100310
  Transmission Date: 20110831
  Serious: No
  Sender: FDA-Public Use
  Company Number: US-ABBOTT-10P-163-0631379-00

PATIENT
  Sex: Female
  Weight: 63.56 kg

DRUGS (5)
  1. SINGULAIR [Concomitant]
     Indication: ASTHMA
  2. METHOTREXATE [Suspect]
     Indication: ARTHRITIS
  3. ADVAIR [Concomitant]
     Indication: ASTHMA
  4. HUMIRA [Suspect]
     Indication: ARTHRITIS
     Route: 058
     Dates: start: 20070101
  5. ZYRTEC [Concomitant]
     Indication: ASTHMA

REACTIONS (4)
  - ASTHMA [None]
  - DECREASED IMMUNE RESPONSIVENESS [None]
  - SINUSITIS [None]
  - BRONCHITIS [None]
